FAERS Safety Report 6238578-8 (Version None)
Quarter: 2009Q2

REPORT INFORMATION
  Report Type: 
  Country: None (occurrence: None)
  Receive Date: 20090622
  Receipt Date: 20090615
  Transmission Date: 20091009
  Serious: Yes (Other)
  Sender: FDA-Public Use
  Company Number: US-ELI_LILLY_AND_COMPANY-US200906003539

PATIENT
  Sex: Male

DRUGS (6)
  1. HUMALOG [Suspect]
     Dates: start: 20020101
  2. HUMALOG [Suspect]
     Dates: start: 20020101
  3. HUMALOG [Suspect]
     Dates: start: 20020101
  4. HUMULIN N [Suspect]
     Dates: start: 20020101
  5. HUMULIN N [Suspect]
     Dates: start: 20020101
  6. LANTUS [Concomitant]

REACTIONS (12)
  - BLOOD GLUCOSE FLUCTUATION [None]
  - BLOOD GLUCOSE INCREASED [None]
  - EXPIRED DRUG ADMINISTERED [None]
  - INSULIN RESISTANT DIABETES [None]
  - INTENTIONAL DRUG MISUSE [None]
  - LYMPHADENOPATHY [None]
  - LYMPHOMA [None]
  - NEUROPATHY PERIPHERAL [None]
  - PANCREATIC CARCINOMA [None]
  - SPINAL COLUMN STENOSIS [None]
  - SPINAL DISORDER [None]
  - VISUAL ACUITY REDUCED [None]
